FAERS Safety Report 9210344 (Version 1)
Quarter: 2013Q2

REPORT INFORMATION
  Report Type: Report from Study
  Country: JP (occurrence: JP)
  Receive Date: 20130404
  Receipt Date: 20130404
  Transmission Date: 20140414
  Serious: Yes (Death, Other)
  Sender: FDA-Public Use
  Company Number: PHHY2012JP120067

PATIENT
  Age: 61 Year
  Sex: Male

DRUGS (3)
  1. AFINITOR [Suspect]
     Indication: RENAL CELL CARCINOMA
     Dosage: 10 MG, DAILY
     Dates: start: 20100816
  2. AFINITOR [Suspect]
     Dosage: 5 MG, DAILY
     Dates: start: 20100907, end: 20100913
  3. SUNITINIB MALATE [Concomitant]
     Indication: RENAL CELL CARCINOMA
     Dosage: 25 MG
     Route: 048
     Dates: start: 20100601, end: 20100813

REACTIONS (5)
  - Renal cell carcinoma [Fatal]
  - Malignant neoplasm progression [Fatal]
  - C-reactive protein increased [Unknown]
  - Haemoglobin decreased [Unknown]
  - Stomatitis [Recovering/Resolving]
